FAERS Safety Report 10207860 (Version 1)
Quarter: 2014Q2

REPORT INFORMATION
  Report Type: Spontaneous
  Country: US (occurrence: US)
  Receive Date: 20140530
  Receipt Date: 20140530
  Transmission Date: 20141212
  Serious: No
  Sender: FDA-Public Use
  Company Number: US-GLAXOSMITHKLINE-A1063340A

PATIENT
  Age: 81 Year
  Sex: Male

DRUGS (2)
  1. VENTOLIN [Suspect]
     Indication: EMPHYSEMA
     Dosage: 1PUFF FOUR TIMES PER DAY
     Route: 055
     Dates: start: 201402
  2. BLOOD PRESSURE MEDICATION [Concomitant]

REACTIONS (3)
  - Dyspnoea [Not Recovered/Not Resolved]
  - Drug ineffective [Not Recovered/Not Resolved]
  - Product quality issue [Not Recovered/Not Resolved]
